FAERS Safety Report 9974178 (Version 1)
Quarter: 2014Q1

REPORT INFORMATION
  Report Type: Spontaneous
  Country: GB (occurrence: GB)
  Receive Date: 20140306
  Receipt Date: 20140306
  Transmission Date: 20141002
  Serious: Yes (Hospitalization)
  Sender: FDA-Public Use
  Company Number: GB-GLAXOSMITHKLINE-B0973886A

PATIENT
  Age: 68 Year
  Sex: Male

DRUGS (8)
  1. SERETIDE [Suspect]
     Indication: CHRONIC OBSTRUCTIVE PULMONARY DISEASE
     Dosage: 4IUAX PER DAY
     Route: 055
     Dates: end: 20140211
  2. AZITHROMYCIN [Concomitant]
  3. CARBOCISTEINE [Concomitant]
  4. LORAZEPAM [Concomitant]
  5. MORPHINE SULPHATE [Concomitant]
  6. OMEPRAZOLE [Concomitant]
  7. SALBUTAMOL [Concomitant]
  8. TIOTROPIUM BROMIDE [Concomitant]

REACTIONS (2)
  - Pneumonia [Recovered/Resolved]
  - Lung consolidation [Recovered/Resolved]
